FAERS Safety Report 7262046-8 (Version None)
Quarter: 2011Q1

REPORT INFORMATION
  Report Type: 
  Country: None (occurrence: None)
  Receive Date: 20110130
  Receipt Date: 20101104
  Transmission Date: 20110831
  Serious: No
  Sender: FDA-Public Use
  Company Number: US-ABBOTT-10P-163-0683528-00

PATIENT
  Age: 30 Year
  Sex: Male

DRUGS (1)
  1. HUMIRA [Suspect]
     Indication: CROHN'S DISEASE
     Dosage: AFTER LOADING DOSES
     Dates: start: 20101021

REACTIONS (3)
  - DEVICE MALFUNCTION [None]
  - INCORRECT DOSE ADMINISTERED BY DEVICE [None]
  - INJECTION SITE SWELLING [None]
